FAERS Safety Report 6298319-5 (Version None)
Quarter: 2009Q3

REPORT INFORMATION
  Report Type: 
  Country: None (occurrence: None)
  Receive Date: 20090805
  Receipt Date: 20090724
  Transmission Date: 20100115
  Serious: Yes (Other)
  Sender: FDA-Public Use
  Company Number: PHHY2009DK30753

PATIENT
  Sex: Female

DRUGS (3)
  1. LEPONEX [Suspect]
     Dosage: 200 MG/DAY
  2. SERTRALINE [Concomitant]
     Dosage: 100 MG/DAY
  3. OLANZAPINE [Concomitant]
     Dosage: 5 MG, PRN

REACTIONS (3)
  - ACNE [None]
  - BLOOD THYROID STIMULATING HORMONE INCREASED [None]
  - METABOLIC DISORDER [None]
